FAERS Safety Report 6052003-1 (Version None)
Quarter: 2009Q1

REPORT INFORMATION
  Report Type: 
  Country: None (occurrence: None)
  Receive Date: 20090126
  Receipt Date: 20090120
  Transmission Date: 20090719
  Serious: Yes (Hospitalization)
  Sender: FDA-Public Use
  Company Number: CZ-EISAI MEDICAL RESEARCH-E2020-03797-SPO-CZ

PATIENT
  Sex: Female

DRUGS (5)
  1. ARICEPT [Suspect]
     Indication: DEMENTIA
     Route: 048
     Dates: start: 20080101, end: 20081113
  2. ARICEPT [Suspect]
     Route: 048
     Dates: start: 20081114, end: 20081101
  3. ARICEPT [Suspect]
     Route: 048
     Dates: start: 20081101
  4. INHIBACE PLUS [Concomitant]
     Route: 048
  5. TORVACARD [Concomitant]
     Route: 048

REACTIONS (2)
  - SICK SINUS SYNDROME [None]
  - SYNCOPE [None]
